FAERS Safety Report 8603644-6 (Version None)
Quarter: 2012Q3

REPORT INFORMATION
  Report Type: 
  Country: None (occurrence: None)
  Receive Date: 20120817
  Receipt Date: 20120806
  Transmission Date: 20120928
  Serious: Yes (Hospitalization, Other)
  Sender: FDA-Public Use
  Company Number: DE-ELI_LILLY_AND_COMPANY-DE201206007623

PATIENT
  Sex: Male

DRUGS (15)
  1. METFORMIN HYDROCHLORIDE [Concomitant]
     Dosage: 850 MG, BID
  2. FUROSEMID-RATIOPHARM               /00032601/ [Concomitant]
  3. PRAVASTATIN [Concomitant]
  4. ALLOPURINOL [Concomitant]
  5. BYDUREON [Suspect]
     Indication: TYPE 2 DIABETES MELLITUS
     Dosage: 2 MG, WEEKLY (1/W)
     Route: 058
     Dates: start: 20120501
  6. NOVAMINOSULFON [Concomitant]
     Dosage: 500 MG, BID
  7. CLOPIDOGREL BISULFATE AND ASPIRIN [Concomitant]
     Dosage: 2 DF, QD
  8. EPROSARTAN MESYLATE [Concomitant]
  9. TAMSULOSIN HCL [Concomitant]
     Dosage: 0.4 MG, QD
  10. BYETTA [Suspect]
     Indication: TYPE 2 DIABETES MELLITUS
     Dosage: 5 UG, UNKNOWN
     Route: 058
     Dates: start: 20090801, end: 20091201
  11. NEURO-LICHTENSTEIN [Concomitant]
  12. CANDESARTAN CILEXETIL [Concomitant]
     Dosage: 8 MG, QD
  13. MAGNESIUM VERLA                    /00648601/ [Concomitant]
  14. BYETTA [Suspect]
     Dosage: 10 UG, UNKNOWN
     Route: 058
     Dates: start: 20091201, end: 20120501
  15. NEBIVOLOL [Concomitant]
     Dosage: 5 MG, QD

REACTIONS (3)
  - CHOLECYSTECTOMY [None]
  - CAROTID ARTERY STENOSIS [None]
  - CORONARY ANGIOPLASTY [None]
